FAERS Safety Report 5269483-1 (Version None)
Quarter: 2007Q1

REPORT INFORMATION
  Report Type: 
  Country: None (occurrence: None)
  Receive Date: 20070320
  Receipt Date: 20070313
  Transmission Date: 20070707
  Serious: Yes (Death, Life-Threatening, Other)
  Sender: FDA-Public Use
  Company Number: GB-MHRA-ADR 20097110

PATIENT
  Age: 89 Year
  Sex: Female
  Weight: 55 kg

DRUGS (6)
  1. ASPIRIN [Suspect]
     Route: 048
     Dates: start: 20060914, end: 20060914
  2. CLOPIDOGREL [Suspect]
     Route: 048
     Dates: start: 20060914, end: 20060914
  3. ENOXAPARIN SODIUM [Suspect]
     Route: 040
     Dates: start: 20060914, end: 20060914
  4. ENOXAPARIN SODIUM [Suspect]
     Route: 058
     Dates: start: 20060914, end: 20060915
  5. TENECTEPLASE [Suspect]
     Route: 040
     Dates: start: 20060914, end: 20060914
  6. PREDNISOLONE [Concomitant]

REACTIONS (1)
  - GASTRIC HAEMORRHAGE [None]
